FAERS Safety Report 12839011 (Version 1)
Quarter: 2016Q4

REPORT INFORMATION
  Report Type: Spontaneous
  Country: US (occurrence: US)
  Receive Date: 20161010
  Receipt Date: 20161010
  Transmission Date: 20170207
  Serious: Yes (Other)
  Sender: FDA-Public Use
  Company Number: None

PATIENT
  Age: 22 Year
  Sex: Female
  Weight: 51.75 kg

DRUGS (2)
  1. ADDERALL XR [Suspect]
     Active Substance: AMPHETAMINE ASPARTATE\AMPHETAMINE SULFATE\DEXTROAMPHETAMINE SACCHARATE\DEXTROAMPHETAMINE SULFATE
     Indication: ATTENTION DEFICIT/HYPERACTIVITY DISORDER
     Route: 048
     Dates: start: 20160301, end: 20161010
  2. NEXPLANON [Concomitant]
     Active Substance: ETONOGESTREL

REACTIONS (5)
  - Muscle spasms [None]
  - Fall [None]
  - Muscular weakness [None]
  - Myalgia [None]
  - Drug dose omission [None]

NARRATIVE: CASE EVENT DATE: 20161004
